FAERS Safety Report 6820205-X (Version None)
Quarter: 2010Q3

REPORT INFORMATION
  Report Type: 
  Country: None (occurrence: None)
  Receive Date: 20100707
  Receipt Date: 20100628
  Transmission Date: 20110219
  Serious: Yes (Other)
  Sender: FDA-Public Use
  Company Number: CN-PFIZER INC-2010080694

PATIENT
  Sex: Male

DRUGS (1)
  1. SUTENT [Suspect]
     Indication: PROSTATE CANCER
     Dosage: 37.5 MG, DAILY
     Route: 048
     Dates: start: 20100518, end: 20100628

REACTIONS (3)
  - PLATELET COUNT DECREASED [None]
  - URINARY BLADDER HAEMORRHAGE [None]
  - WHITE BLOOD CELL COUNT DECREASED [None]
